FAERS Safety Report 21033162 (Version 1)
Quarter: 2022Q3

REPORT INFORMATION
  Report Type: Spontaneous
  Country: US (occurrence: US)
  Receive Date: 20220701
  Receipt Date: 20220701
  Transmission Date: 20221026
  Serious: Yes (Other)
  Sender: FDA-Public Use
  Company Number: US-RECKITT BENCKISER HEALTHCARE INT LIMITED-RB-091641-2022

PATIENT
  Age: 73 Year
  Sex: Male

DRUGS (3)
  1. MUCINEX DM [Suspect]
     Active Substance: DEXTROMETHORPHAN HYDROBROMIDE\GUAIFENESIN
     Indication: Respiratory tract congestion
     Dosage: 1200 MILLIGRAM, QD
     Route: 048
     Dates: start: 20220618, end: 20220618
  2. MUCINEX DM [Suspect]
     Active Substance: DEXTROMETHORPHAN HYDROBROMIDE\GUAIFENESIN
     Dosage: 600 MILLIGRAM, SINGLE
     Route: 048
     Dates: start: 20220619, end: 20220619
  3. MUCINEX MAXIMUM STRENGTH [Suspect]
     Active Substance: GUAIFENESIN
     Indication: Respiratory tract congestion
     Dosage: TOOK HALF, SINGLE
     Route: 048
     Dates: start: 20220619

REACTIONS (6)
  - Drug hypersensitivity [Recovered/Resolved]
  - Chest discomfort [Recovered/Resolved]
  - Drug ineffective [Recovered/Resolved]
  - Wrong technique in product usage process [Recovered/Resolved]
  - Urticaria [Recovered/Resolved]
  - Pruritus [Recovered/Resolved]

NARRATIVE: CASE EVENT DATE: 20220619
